FAERS Safety Report 5169996-7 (Version None)
Quarter: 2006Q4

REPORT INFORMATION
  Report Type: 
  Country: None (occurrence: None)
  Receive Date: 20061212
  Receipt Date: 20061129
  Transmission Date: 20070319
  Serious: Yes (Hospitalization)
  Sender: FDA-Public Use
  Company Number: FR-GLAXOSMITHKLINE-B0449038A

PATIENT
  Age: 48 Year
  Sex: Male

DRUGS (5)
  1. TELZIR [Suspect]
     Indication: HIV INFECTION
     Dosage: 700MG TWICE PER DAY
     Route: 048
     Dates: start: 20051227
  2. ABACAVIR [Suspect]
     Indication: HIV INFECTION
     Dosage: 1UNIT PER DAY
     Route: 048
     Dates: start: 20051227
  3. NORVIR [Suspect]
     Indication: HIV INFECTION
     Dosage: 100MG TWICE PER DAY
     Route: 048
     Dates: start: 20051227
  4. SEROPLEX [Suspect]
     Indication: DEPRESSION
     Dosage: 15MG PER DAY
     Route: 048
  5. TERCIAN [Suspect]
     Indication: DEPRESSION
     Dosage: 10MG THREE TIMES PER DAY
     Route: 048

REACTIONS (13)
  - ABASIA [None]
  - ATRIAL SEPTAL DEFECT [None]
  - BLOOD LACTIC ACID INCREASED [None]
  - CARDIAC ANEURYSM [None]
  - COORDINATION ABNORMAL [None]
  - EXTRAPYRAMIDAL DISORDER [None]
  - FACIAL PALSY [None]
  - HYPERTRIGLYCERIDAEMIA [None]
  - HYPOTENSION [None]
  - LOSS OF CONSCIOUSNESS [None]
  - MALAISE [None]
  - NEUROGENIC BLADDER [None]
  - SENSORY LOSS [None]
